FAERS Safety Report 5055186-5 (Version None)
Quarter: 2006Q3

REPORT INFORMATION
  Report Type: 
  Country: None (occurrence: None)
  Receive Date: 20060719
  Receipt Date: 20060707
  Transmission Date: 20061208
  Serious: Yes (Hospitalization)
  Sender: FDA-Public Use
  Company Number: US-AMGEN-STX185721

PATIENT
  Sex: Female

DRUGS (2)
  1. ENBREL [Suspect]
     Indication: RHEUMATOID ARTHRITIS
     Route: 058
     Dates: start: 19960101
  2. METHOTREXATE [Concomitant]
     Route: 065

REACTIONS (7)
  - CONDITION AGGRAVATED [None]
  - FATIGUE [None]
  - FRACTURE [None]
  - OOPHORECTOMY BILATERAL [None]
  - PNEUMONIA [None]
  - UPPER LIMB FRACTURE [None]
  - WRIST FRACTURE [None]
